FAERS Safety Report 14298847 (Version 1)
Quarter: 2017Q4

REPORT INFORMATION
  Report Type: Spontaneous
  Country: US (occurrence: US)
  Receive Date: 20171216
  Receipt Date: 20171216
  Transmission Date: 20180321
  Serious: Yes (Hospitalization)
  Sender: FDA-Public Use
  Company Number: None

PATIENT
  Age: 72 Year
  Sex: Male

DRUGS (2)
  1. VALPROIC ACID. [Suspect]
     Active Substance: VALPROIC ACID
     Indication: BIPOLAR DISORDER
     Route: 048
     Dates: start: 20170201, end: 20170715
  2. VALPROIC ACID. [Suspect]
     Active Substance: VALPROIC ACID
     Indication: MANIA
     Route: 048
     Dates: start: 20170201, end: 20170715

REACTIONS (3)
  - Delirium [None]
  - Thrombocytopenia [None]
  - Asthenia [None]

NARRATIVE: CASE EVENT DATE: 20170712
